FAERS Safety Report 7664821-4 (Version None)
Quarter: 2011Q3

REPORT INFORMATION
  Report Type: 
  Country: None (occurrence: None)
  Receive Date: 20110806
  Receipt Date: 20110202
  Transmission Date: 20111222
  Serious: No
  Sender: FDA-Public Use
  Company Number: US-ABBOTT-11P-163-0702164-00

PATIENT
  Sex: Male

DRUGS (2)
  1. NIASPAN [Suspect]
  2. NIASPAN [Suspect]
     Indication: HIGH DENSITY LIPOPROTEIN DECREASED

REACTIONS (5)
  - MYASTHENIA GRAVIS [None]
  - FLUSHING [None]
  - THROAT IRRITATION [None]
  - ADVERSE DRUG REACTION [None]
  - MUSCULAR WEAKNESS [None]
